FAERS Safety Report 9705140 (Version 3)
Quarter: 2014Q3

REPORT INFORMATION
  Report Type: Spontaneous
  Country: US (occurrence: US)
  Receive Date: 20131122
  Receipt Date: 20140703
  Transmission Date: 20150326
  Serious: Yes (Life-Threatening)
  Sender: FDA-Public Use
  Company Number: US-BAYER-2013-140152

PATIENT
  Age: 21 Year
  Sex: Female
  Weight: 74.83 kg

DRUGS (4)
  1. ALBUTEROL. [Concomitant]
     Active Substance: ALBUTEROL
     Dosage: UNK
     Route: 045
     Dates: start: 200206
  2. MIRENA [Suspect]
     Active Substance: LEVONORGESTREL
     Indication: CONTRACEPTION
     Dosage: 20 MCG/24HR, CONT
     Route: 015
     Dates: start: 200608, end: 20110914
  3. ADVAIR HFA [Concomitant]
     Active Substance: FLUTICASONE PROPIONATE\SALMETEROL XINAFOATE
     Dosage: UNK
     Route: 045
     Dates: start: 200206
  4. PRENATE [FOLIC ACID,IRON,MINERALS NOS,VITAMINS NOS] [Concomitant]
     Dosage: UNK
     Dates: start: 200206

REACTIONS (10)
  - Device defective [None]
  - Device issue [None]
  - Abdominal pain lower [None]
  - Injury [None]
  - Emotional distress [None]
  - Endometrial disorder [None]
  - General physical health deterioration [None]
  - Anxiety [None]
  - Anhedonia [None]
  - Abortion spontaneous [None]

NARRATIVE: CASE EVENT DATE: 2007
